FAERS Safety Report 4919515-2 (Version None)
Quarter: 2006Q1

REPORT INFORMATION
  Report Type: 
  Country: None (occurrence: None)
  Receive Date: 20060222
  Receipt Date: 20050412
  Transmission Date: 20060701
  Serious: Yes (Hospitalization)
  Sender: FDA-Public Use
  Company Number: US-MERCK-0504USA02018

PATIENT
  Age: 56 Year
  Sex: Female
  Weight: 98 kg

DRUGS (5)
  1. VIOXX [Suspect]
     Indication: BACK PAIN
     Route: 048
     Dates: start: 20010504, end: 20021019
  2. VIOXX [Suspect]
     Indication: KNEE ARTHROPLASTY
     Route: 048
     Dates: start: 20010504, end: 20021019
  3. PREMARIN [Concomitant]
     Route: 065
  4. PROZAC [Concomitant]
     Route: 065
  5. BUSPAR [Concomitant]
     Route: 065

REACTIONS (9)
  - ANAEMIA POSTOPERATIVE [None]
  - ANGINA UNSTABLE [None]
  - ATRIOVENTRICULAR BLOCK FIRST DEGREE [None]
  - BACK PAIN [None]
  - CARPAL TUNNEL SYNDROME [None]
  - HYPERGLYCAEMIA [None]
  - HYPERLIPIDAEMIA [None]
  - HYPOTENSION [None]
  - THROMBOCYTOPENIA [None]
